FAERS Safety Report 5575244-6 (Version None)
Quarter: 2007Q4

REPORT INFORMATION
  Report Type: 
  Country: None (occurrence: None)
  Receive Date: 20071227
  Receipt Date: 20071217
  Transmission Date: 20080405
  Serious: Yes (Other)
  Sender: FDA-Public Use
  Company Number: US-PFIZER INC-2007106745

PATIENT
  Sex: Female
  Weight: 72.6 kg

DRUGS (6)
  1. CHANTIX [Suspect]
     Indication: SMOKING CESSATION THERAPY
     Dates: start: 20071107, end: 20071217
  2. EFFEXOR XR [Concomitant]
     Indication: DEPRESSION
  3. TRAZODONE HCL [Concomitant]
     Indication: SLEEP DISORDER
  4. ATENOLOL [Concomitant]
     Indication: MIGRAINE PROPHYLAXIS
  5. AXERT [Concomitant]
     Indication: MIGRAINE
  6. NEURONTIN [Concomitant]

REACTIONS (4)
  - AGGRESSION [None]
  - BIPOLAR DISORDER [None]
  - FALL [None]
  - LOSS OF CONSCIOUSNESS [None]
